FAERS Safety Report 22590574 (Version 2)
Quarter: 2023Q2

REPORT INFORMATION
  Report Type: Spontaneous
  Country: BR (occurrence: BR)
  Receive Date: 20230612
  Receipt Date: 20230628
  Transmission Date: 20230721
  Serious: Yes (Other)
  Sender: FDA-Public Use
  Company Number: BR-ELI_LILLY_AND_COMPANY-BR202306001428

PATIENT
  Sex: Female

DRUGS (1)
  1. HUMULIN N [Suspect]
     Active Substance: INSULIN HUMAN
     Indication: Diabetes mellitus
     Dosage: UNK UNK, UNKNOWN
     Route: 065

REACTIONS (8)
  - Syncope [Unknown]
  - Blindness [Unknown]
  - Dizziness [Unknown]
  - Hypertension [Unknown]
  - Anaemia [Unknown]
  - Renal disorder [Unknown]
  - Hypothyroidism [Unknown]
  - Blood glucose decreased [Unknown]
